FAERS Safety Report 24262618 (Version 1)
Quarter: 2024Q3

REPORT INFORMATION
  Report Type: Report from Study
  Country: US (occurrence: US)
  Receive Date: 20240829
  Receipt Date: 20240829
  Transmission Date: 20241016
  Serious: Yes (Hospitalization)
  Sender: ROCHE
  Company Number: US-ROCHE-10000061236

PATIENT
  Age: 79 Year
  Sex: Female

DRUGS (1)
  1. ACTEMRA [Suspect]
     Active Substance: TOCILIZUMAB
     Indication: Rheumatoid arthritis
     Dosage: INFUSE 4MG/KG (400MG) INTRAVENOUSLY ONCE EVERY 4 WEEK(S)
     Route: 042

REACTIONS (1)
  - Atrioventricular block [Unknown]
